FAERS Safety Report 11395029 (Version 1)
Quarter: 2015Q3

REPORT INFORMATION
  Report Type: Report from Study
  Country: US (occurrence: US)
  Receive Date: 20150819
  Receipt Date: 20150819
  Transmission Date: 20151125
  Serious: Yes (Hospitalization, Other)
  Sender: FDA-Public Use
  Company Number: US-ASTELLAS-2015US021168

PATIENT
  Sex: Female

DRUGS (2)
  1. PRIMAXIN IV [Concomitant]
     Active Substance: CILASTATIN SODIUM\IMIPENEM
     Indication: PRODUCT USED FOR UNKNOWN INDICATION
     Dosage: UNK UNK, EVERY 6 HOURS
     Route: 042
  2. ERLOTINIB [Suspect]
     Active Substance: ERLOTINIB
     Indication: MALIGNANT RESPIRATORY TRACT NEOPLASM
     Route: 048
     Dates: start: 20050223

REACTIONS (13)
  - Back pain [Unknown]
  - Pyrexia [Unknown]
  - Wheezing [Unknown]
  - Rash [Unknown]
  - Hypotension [Unknown]
  - Asthenia [Unknown]
  - Rash macular [Unknown]
  - Dyspnoea [Unknown]
  - Arrhythmia [Unknown]
  - Fall [Unknown]
  - Muscular weakness [Unknown]
  - Compression fracture [Unknown]
  - Skin ulcer [Unknown]
